FAERS Safety Report 17557750 (Version 2)
Quarter: 2020Q2

REPORT INFORMATION
  Report Type: Spontaneous
  Country: US (occurrence: US)
  Receive Date: 20200318
  Receipt Date: 20200507
  Transmission Date: 20200713
  Serious: Yes (Other)
  Sender: FDA-Public Use
  Company Number: US-BAYER-2020-045712

PATIENT
  Sex: Female
  Weight: 100 kg

DRUGS (2)
  1. CETRIZINE [Concomitant]
     Active Substance: CETIRIZINE HYDROCHLORIDE
  2. ALEVE BACK AND MUSCLE PAIN [Suspect]
     Active Substance: NAPROXEN SODIUM
     Indication: PAIN
     Dosage: 2 DF
     Route: 048
     Dates: start: 202003, end: 20200316

REACTIONS (8)
  - Abdominal pain upper [Recovered/Resolved]
  - Product use issue [Unknown]
  - Choking [Recovered/Resolved]
  - Oesophageal discomfort [Recovered/Resolved]
  - Inappropriate schedule of product administration [Unknown]
  - Product taste abnormal [None]
  - Dyspepsia [Recovered/Resolved]
  - Gastrooesophageal reflux disease [Recovered/Resolved]

NARRATIVE: CASE EVENT DATE: 202003
